FAERS Safety Report 8001207-7 (Version None)
Quarter: 2011Q4

REPORT INFORMATION
  Report Type: 
  Country: None (occurrence: None)
  Receive Date: 20111222
  Receipt Date: 20111216
  Transmission Date: 20120403
  Serious: Yes (Hospitalization, Other)
  Sender: FDA-Public Use
  Company Number: US-PFIZER INC-2011310474

PATIENT
  Age: 29 Year
  Sex: Female

DRUGS (3)
  1. PRISTIQ [Suspect]
     Dosage: UNK
  2. VALGANCICLOVIR [Suspect]
     Dosage: UNK
  3. AZATHIOPRINE [Suspect]
     Dosage: UNK

REACTIONS (1)
  - CYTOMEGALOVIRUS HEPATITIS [None]
